FAERS Safety Report 9025973 (Version 3)
Quarter: 2021Q2

REPORT INFORMATION
  Report Type: Other
  Country: CA (occurrence: CA)
  Receive Date: 20130122
  Receipt Date: 20210611
  Transmission Date: 20210717
  Serious: Yes (Hospitalization, Other)
  Sender: FDA-Public Use
  Company Number: CA-ROCHE-1181380

PATIENT
  Age: 25 Year
  Sex: Male
  Weight: 61 kg

DRUGS (12)
  1. ACTEMRA [Suspect]
     Active Substance: TOCILIZUMAB
     Route: 042
     Dates: start: 20120112
  2. ACTEMRA [Suspect]
     Active Substance: TOCILIZUMAB
     Route: 042
     Dates: start: 20130116
  3. ACTEMRA [Suspect]
     Active Substance: TOCILIZUMAB
     Route: 042
     Dates: start: 20120405
  4. ACTEMRA [Suspect]
     Active Substance: TOCILIZUMAB
     Route: 042
     Dates: start: 20120531
  5. CORTISONE [Concomitant]
     Active Substance: CORTISONE
  6. ACTEMRA [Suspect]
     Active Substance: TOCILIZUMAB
     Route: 042
     Dates: start: 20120209
  7. ACTEMRA [Suspect]
     Active Substance: TOCILIZUMAB
     Indication: STILL^S DISEASE
     Route: 042
     Dates: start: 20111117
  8. ACTEMRA [Suspect]
     Active Substance: TOCILIZUMAB
     Route: 042
     Dates: start: 20111215
  9. ACTEMRA [Suspect]
     Active Substance: TOCILIZUMAB
     Dosage: DOSE CONTINUED AT 8MG/KG.
     Route: 042
     Dates: start: 20120308
  10. ACTEMRA [Suspect]
     Active Substance: TOCILIZUMAB
     Indication: RHEUMATOID ARTHRITIS
     Dosage: DOSE CONTINUED AT 8MG/KG
     Route: 042
     Dates: start: 20111020, end: 20210604
  11. ACTEMRA [Suspect]
     Active Substance: TOCILIZUMAB
     Route: 042
     Dates: start: 20120503
  12. ACTEMRA [Suspect]
     Active Substance: TOCILIZUMAB
     Route: 042
     Dates: start: 20120518

REACTIONS (4)
  - Arthralgia [Recovering/Resolving]
  - Tibia fracture [Unknown]
  - Fall [Unknown]
  - Joint destruction [Unknown]

NARRATIVE: CASE EVENT DATE: 201208
